FAERS Safety Report 14165463 (Version 8)
Quarter: 2018Q3

REPORT INFORMATION
  Report Type: Spontaneous
  Country: IT (occurrence: IT)
  Receive Date: 20171107
  Receipt Date: 20180829
  Transmission Date: 20181010
  Serious: Yes (Other)
  Sender: FDA-Public Use
  Company Number: IT-AUROBINDO-AUR-APL-2017-43260

PATIENT
  Age: 27 Year
  Sex: Female

DRUGS (19)
  1. TENOFOVIR DISOPROXIL FILM COATED TABLETS [Suspect]
     Active Substance: TENOFOVIR DISOPROXIL
     Indication: ANTIRETROVIRAL THERAPY
  2. TENOFOVIR DISOPROXIL FILM COATED TABLETS [Suspect]
     Active Substance: TENOFOVIR DISOPROXIL
     Indication: HEPATITIS B
  3. EMTRICITABINE / TENOFOVIR DISOPROXIL FUMARATE [Suspect]
     Active Substance: EMTRICITABINE\TENOFOVIR DISOPROXIL FUMARATE
     Indication: HIV INFECTION
     Dosage: UNK
     Route: 065
     Dates: start: 201404
  4. RAMIPRIL. [Concomitant]
     Active Substance: RAMIPRIL
     Indication: PRODUCT USED FOR UNKNOWN INDICATION
     Dosage: UNK
     Route: 065
  5. DARUNAVIR [Concomitant]
     Active Substance: DARUNAVIR
     Dosage: 600 MG, BID
  6. ZIDOVUDINE. [Concomitant]
     Active Substance: ZIDOVUDINE
     Indication: ANTIRETROVIRAL THERAPY
     Dosage: 300 MILLIGRAM, ONCE A DAY
     Route: 065
  7. LAMIVUDINE AND ZIDOVUDINE [Suspect]
     Active Substance: LAMIVUDINE\ZIDOVUDINE
     Indication: ANTIRETROVIRAL THERAPY
  8. RITONAVIR. [Concomitant]
     Active Substance: RITONAVIR
     Indication: PRODUCT USED FOR UNKNOWN INDICATION
     Dosage: 100 MG, BID
     Route: 065
  9. TENOFOVIR ALAFENAMIDE [Concomitant]
     Active Substance: TENOFOVIR ALAFENAMIDE
     Indication: PRODUCT USED FOR UNKNOWN INDICATION
     Dosage: UNK
     Route: 065
  10. LAMIVUDINE AND ZIDOVUDINE [Suspect]
     Active Substance: LAMIVUDINE\ZIDOVUDINE
     Indication: HIV INFECTION
     Dosage: UNK
     Route: 065
  11. EMTRICITABINE / TENOFOVIR DISOPROXIL FUMARATE [Suspect]
     Active Substance: EMTRICITABINE\TENOFOVIR DISOPROXIL FUMARATE
     Indication: ANTIRETROVIRAL THERAPY
  12. TENOFOVIR DISOPROXIL FILM COATED TABLETS [Suspect]
     Active Substance: TENOFOVIR DISOPROXIL
     Indication: HIV INFECTION
     Dosage: 245 MILLIGRAM, EVERY 72H
     Route: 065
     Dates: start: 201505
  13. EMTRICITABINE / TENOFOVIR DISOPROXIL FUMARATE [Suspect]
     Active Substance: EMTRICITABINE\TENOFOVIR DISOPROXIL FUMARATE
     Indication: HEPATITIS B
  14. LAMIVUDINE. [Concomitant]
     Active Substance: LAMIVUDINE
     Indication: ANTIRETROVIRAL THERAPY
     Dosage: 100 MILLIGRAM, ONCE A DAY
     Route: 065
  15. EFAVIRENZ FILM COATED TABLETS [Suspect]
     Active Substance: EFAVIRENZ
     Indication: ANTIRETROVIRAL THERAPY
     Dosage: 800 MG, DAILY
     Route: 065
  16. EFAVIRENZ FILM COATED TABLETS [Suspect]
     Active Substance: EFAVIRENZ
     Indication: HIV INFECTION
  17. LAMIVUDINE AND ZIDOVUDINE [Suspect]
     Active Substance: LAMIVUDINE\ZIDOVUDINE
     Indication: HEPATITIS B
  18. RALTEGRAVIR. [Suspect]
     Active Substance: RALTEGRAVIR
     Indication: ANTIRETROVIRAL THERAPY
     Dosage: UNK
     Route: 016
  19. DARUNAVIR [Concomitant]
     Active Substance: DARUNAVIR
     Indication: ANTIRETROVIRAL THERAPY
     Dosage: 600 MILLIGRAM, ONCE A DAY
     Route: 065

REACTIONS (7)
  - End stage renal disease [Unknown]
  - Drug resistance [Unknown]
  - Viral mutation identified [Unknown]
  - Virologic failure [Unknown]
  - Treatment noncompliance [Unknown]
  - Pathogen resistance [Unknown]
  - Prescribed overdose [Unknown]

NARRATIVE: CASE EVENT DATE: 201404
